FAERS Safety Report 5828293-4 (Version None)
Quarter: 2008Q3

REPORT INFORMATION
  Report Type: 
  Country: None (occurrence: None)
  Receive Date: 20080730
  Receipt Date: 20080730
  Transmission Date: 20090109
  Serious: No
  Sender: FDA-Public Use
  Company Number: None

PATIENT
  Age: 52 Year
  Sex: Female
  Weight: 65.318 kg

DRUGS (1)
  1. NEOSTIGMINE 1MG/ML IN 5ML PREDRAWN SYRINGE [Suspect]
     Indication: NEUROMUSCULAR BLOCKADE REVERSAL
     Dosage: 5MG ONCE IV
     Route: 042
     Dates: start: 20080711

REACTIONS (1)
  - DRUG INEFFECTIVE [None]
